FAERS Safety Report 12416342 (Version 1)
Quarter: 2016Q2

REPORT INFORMATION
  Report Type: Spontaneous
  Country: FR (occurrence: FR)
  Receive Date: 20160530
  Receipt Date: 20160530
  Transmission Date: 20160815
  Serious: Yes (Hospitalization)
  Sender: FDA-Public Use
  Company Number: FR-009507513-1605FRA013850

PATIENT
  Age: 53 Year
  Sex: Male

DRUGS (14)
  1. APROVEL [Suspect]
     Active Substance: IRBESARTAN
     Indication: HYPERTENSION
     Dosage: 300 MG, QD
     Route: 048
     Dates: start: 20160324, end: 20160413
  2. METFORMIN [Concomitant]
     Active Substance: METFORMIN HYDROCHLORIDE
     Dosage: 500 MG, BID
     Dates: start: 20160415, end: 20160417
  3. METFORMIN [Concomitant]
     Active Substance: METFORMIN HYDROCHLORIDE
     Dosage: 1000 MG, QD
     Route: 048
     Dates: start: 20160401, end: 20160413
  4. PLAVIX [Concomitant]
     Active Substance: CLOPIDOGREL BISULFATE
     Dosage: 75 MG, QD
     Route: 048
  5. BECILAN [Concomitant]
     Active Substance: PYRIDOXINE
     Dosage: 250 MG, BID
  6. VALIUM [Concomitant]
     Active Substance: DIAZEPAM
     Dosage: 30 - 40 MG, QD
     Dates: start: 20160401
  7. METFORMIN [Concomitant]
     Active Substance: METFORMIN HYDROCHLORIDE
     Dosage: 1000 MG, BID
     Dates: start: 20160418
  8. NICOBION [Concomitant]
     Active Substance: NIACINAMIDE
     Dosage: 500 MG, BID
  9. LEVEMIR [Concomitant]
     Active Substance: INSULIN DETEMIR
     Dosage: 100 U/ML X 10, QD
  10. BEVITINE [Concomitant]
     Active Substance: THIAMINE
     Dosage: 250 MG, BID
  11. VALIUM [Concomitant]
     Active Substance: DIAZEPAM
     Dosage: 10 MG, QID
     Dates: end: 20160331
  12. PANTOPRAZOLE [Concomitant]
     Active Substance: PANTOPRAZOLE SODIUM
     Dosage: UNK
     Route: 048
     Dates: start: 20160324
  13. JANUVIA [Suspect]
     Active Substance: SITAGLIPTIN PHOSPHATE
     Indication: TYPE 2 DIABETES MELLITUS
     Dosage: 50 MG, BID
     Route: 048
     Dates: start: 20160411, end: 20160413
  14. TENORMIN [Concomitant]
     Active Substance: ATENOLOL
     Dosage: 100 MG, QD
     Route: 048

REACTIONS (2)
  - Lipase increased [Recovering/Resolving]
  - Blood creatinine increased [Recovered/Resolved]

NARRATIVE: CASE EVENT DATE: 2016
